FAERS Safety Report 9500023 (Version 1)
Quarter: 2013Q3

REPORT INFORMATION
  Report Type: Spontaneous
  Country: US (occurrence: US)
  Receive Date: 20130905
  Receipt Date: 20130905
  Transmission Date: 20140515
  Serious: No
  Sender: FDA-Public Use
  Company Number: US-PFIZER INC-2013249952

PATIENT
  Age: 94 Year
  Sex: Female
  Weight: 88.44 kg

DRUGS (2)
  1. GLUCOTROL [Suspect]
     Indication: DIABETES MELLITUS
     Dosage: 5 MG, 1X/DAY
     Route: 048
  2. GLUCOTROL XL [Suspect]
     Dosage: UNK

REACTIONS (3)
  - Fall [Unknown]
  - Arthralgia [Unknown]
  - Medication residue present [Unknown]
